FAERS Safety Report 7759083-3 (Version None)
Quarter: 2011Q3

REPORT INFORMATION
  Report Type: 
  Country: None (occurrence: None)
  Receive Date: 20110919
  Receipt Date: 20110905
  Transmission Date: 20111222
  Serious: Yes (Other)
  Sender: FDA-Public Use
  Company Number: PHHY2011DE01898

PATIENT
  Sex: Male
  Weight: 82 kg

DRUGS (11)
  1. CHOLESTEROL- AND TRIGLYCERIDE REDUCERS [Concomitant]
     Dosage: UNK
  2. RAMIPRIL [Suspect]
     Dosage: 5 MG, PER DAY
     Route: 048
     Dates: start: 20081016, end: 20090519
  3. RAMIPRIL [Suspect]
     Dosage: 2.5 MG/DAY
     Route: 048
     Dates: start: 20090519, end: 20100803
  4. ACARBOSE [Concomitant]
     Dosage: 200 MG, QD
     Dates: start: 20041207
  5. RASILEZ [Suspect]
     Indication: HYPERTENSION
     Dosage: 1 DF, QD (150 MG)
     Route: 048
     Dates: start: 20081126, end: 20090601
  6. RASILEZ [Suspect]
     Dosage: 150 MG 1 DF, QD
     Route: 048
     Dates: start: 20110304, end: 20110418
  7. ORAL ANTIDIABETICS [Concomitant]
     Indication: DIABETES MELLITUS
     Dosage: UNK
  8. SIMVASTATIN [Concomitant]
     Dosage: 10 MG, QD
     Route: 048
     Dates: start: 20050103
  9. RASILEZ [Suspect]
     Indication: ALBUMINURIA
     Dosage: 150 MG 1 DF, QD
     Route: 048
     Dates: start: 20091101, end: 20101013
  10. METFORMIN HCL [Concomitant]
     Dosage: 2550 MG, QD
     Route: 048
     Dates: start: 20060119
  11. LOSARTAN POTASSIUM [Concomitant]
     Dosage: UNK
     Dates: start: 20101013, end: 20110217

REACTIONS (10)
  - PRURITUS [None]
  - ANGIOEDEMA [None]
  - BLOOD GLUCOSE INCREASED [None]
  - BILIRUBIN URINE [None]
  - LIP SWELLING [None]
  - URTICARIA [None]
  - RASH [None]
  - PIGMENTATION DISORDER [None]
  - NAUSEA [None]
  - GLYCOSYLATED HAEMOGLOBIN INCREASED [None]
